FAERS Safety Report 6877951-1 (Version None)
Quarter: 2010Q3

REPORT INFORMATION
  Report Type: 
  Country: None (occurrence: None)
  Receive Date: 20100727
  Receipt Date: 20100722
  Transmission Date: 20110219
  Serious: Yes (Life-Threatening, Hospitalization)
  Sender: FDA-Public Use
  Company Number: PHHY2010CH48064

PATIENT
  Age: 47 Year
  Sex: Female

DRUGS (2)
  1. TEGRETOL [Suspect]
     Indication: ARTHRALGIA
     Dosage: UNK
     Route: 048
     Dates: start: 20100409, end: 20100428
  2. GLUCOPHAGE [Concomitant]
     Indication: TYPE 2 DIABETES MELLITUS
     Dosage: UNK
     Route: 048

REACTIONS (23)
  - AGGRESSION [None]
  - BLISTER [None]
  - CIRCUMSTANCE OR INFORMATION CAPABLE OF LEADING TO MEDICATION ERROR [None]
  - CONJUNCTIVITIS [None]
  - ESCHERICHIA URINARY TRACT INFECTION [None]
  - EYE DISCHARGE [None]
  - HEPATIC STEATOSIS [None]
  - LIP EROSION [None]
  - MUCOSAL INFLAMMATION [None]
  - NIKOLSKY'S SIGN [None]
  - ORAL MUCOSA EROSION [None]
  - PYREXIA [None]
  - RASH [None]
  - RASH MACULO-PAPULAR [None]
  - RASH MACULOVESICULAR [None]
  - SCAB [None]
  - SKIN EROSION [None]
  - SKIN LESION [None]
  - SKIN NECROSIS [None]
  - SKIN REACTION [None]
  - STEVENS-JOHNSON SYNDROME [None]
  - TOXIC EPIDERMAL NECROLYSIS [None]
  - VAGINAL EROSION [None]
